FAERS Safety Report 10567362 (Version 2)
Quarter: 2014Q4

REPORT INFORMATION
  Report Type: Not Available
  Country: US (occurrence: US)
  Receive Date: 20141106
  Receipt Date: 20141106
  Transmission Date: 20150529
  Serious: Yes (Other)
  Sender: FDA-Public Use
  Company Number: US-LUPIN PHARMACEUTICALS INC.-E2B_00001492

PATIENT
  Age: 72 Year
  Sex: Female
  Weight: 54.93 kg

DRUGS (4)
  1. LISINOPRIL TABLETS USP 10 MG [Concomitant]
     Active Substance: LISINOPRIL
     Indication: BLOOD PRESSURE
     Dates: start: 20131118, end: 20131124
  2. HYDROCHLOROTHIAZIDE. [Concomitant]
     Active Substance: HYDROCHLOROTHIAZIDE
     Indication: PRODUCT USED FOR UNKNOWN INDICATION
  3. LISINOPRIL TABLETS USP 20 MG [Suspect]
     Active Substance: LISINOPRIL
     Indication: BLOOD PRESSURE
     Dates: start: 20131103, end: 20131117
  4. LISINOPRIL TABLETS USP 20 MG [Suspect]
     Active Substance: LISINOPRIL
     Dates: start: 20131125

REACTIONS (3)
  - Heart rate irregular [Unknown]
  - Drug ineffective [Unknown]
  - Blood pressure increased [Unknown]

NARRATIVE: CASE EVENT DATE: 20131125
